FAERS Safety Report 20556534 (Version 1)
Quarter: 2022Q1

REPORT INFORMATION
  Report Type: Report from Study
  Country: CA (occurrence: CA)
  Receive Date: 20220307
  Receipt Date: 20220307
  Transmission Date: 20220423
  Serious: Yes (Other)
  Sender: FDA-Public Use
  Company Number: CA-TEVA-2022-CA-2012574

PATIENT
  Age: 56 Year
  Sex: Female

DRUGS (2)
  1. AJOVY [Suspect]
     Active Substance: FREMANEZUMAB-VFRM
     Indication: Migraine prophylaxis
     Dosage: LAST INJECTION DATE 22-FEB-2022
     Route: 058
     Dates: start: 20210922
  2. AMITRIPTYLINE [Concomitant]
     Active Substance: AMITRIPTYLINE

REACTIONS (11)
  - Seizure like phenomena [Unknown]
  - Depressed level of consciousness [Unknown]
  - Angina pectoris [Unknown]
  - Coma [Unknown]
  - Memory impairment [Unknown]
  - Irritability [Unknown]
  - Headache [Unknown]
  - Depersonalisation/derealisation disorder [Unknown]
  - Balance disorder [Unknown]
  - Gait disturbance [Unknown]
  - Pruritus [Unknown]
